FAERS Safety Report 4420985-7 (Version None)
Quarter: 2004Q2

REPORT INFORMATION
  Report Type: 
  Country: None (occurrence: None)
  Receive Date: 20040621
  Receipt Date: 20040303
  Transmission Date: 20050107
  Serious: Yes (Death)
  Sender: FDA-Public Use
  Company Number: A-US2003-02731

PATIENT
  Age: 78 Year
  Sex: Female

DRUGS (11)
  1. TRACLEER [Suspect]
     Indication: PULMONARY HYPERTENSION
     Dosage: 62.5 MG, BID, ORAL; 125 MG, BID, ORAL
     Route: 048
     Dates: start: 20030301, end: 20030401
  2. TRACLEER [Suspect]
     Indication: PULMONARY HYPERTENSION
     Dosage: 62.5 MG, BID, ORAL; 125 MG, BID, ORAL
     Route: 048
     Dates: start: 20030401
  3. CARDIZEM CD [Concomitant]
  4. LASIX [Concomitant]
  5. COUMADIN [Concomitant]
  6. DIGOXIN [Concomitant]
  7. POTASSIUM (POTASSIUM) [Concomitant]
  8. METOLAZONE [Concomitant]
  9. SPIRINOLACTONE (SPIRONOLACTONE) [Concomitant]
  10. MIACALCIN [Concomitant]
  11. ADVAIR (SALMETEROL XINAFOATE) [Concomitant]

REACTIONS (4)
  - CARDIAC FAILURE CONGESTIVE [None]
  - HAIR COLOUR CHANGES [None]
  - SKIN DISCOLOURATION [None]
  - UNEVALUABLE EVENT [None]
